FAERS Safety Report 24846488 (Version 1)
Quarter: 2025Q1

REPORT INFORMATION
  Report Type: Spontaneous
  Country: FR (occurrence: FR)
  Receive Date: 20250115
  Receipt Date: 20250115
  Transmission Date: 20250409
  Serious: Yes (Other)
  Sender: BRISTOL-MYERS SQUIBB COMPANY
  Company Number: None

PATIENT
  Age: 91 Year
  Sex: Male
  Weight: 63 kg

DRUGS (3)
  1. ELIQUIS [Suspect]
     Active Substance: APIXABAN
     Indication: Embolism
     Dosage: 5 MG PER DAY
     Route: 048
     Dates: start: 20241113
  2. BACTRIM [Suspect]
     Active Substance: SULFAMETHOXAZOLE\TRIMETHOPRIM
     Indication: Osteitis
     Dosage: 1 DF 3 TIMES A DAY
     Route: 048
     Dates: start: 20241024
  3. CLINDAMYCIN HYDROCHLORIDE [Suspect]
     Active Substance: CLINDAMYCIN HYDROCHLORIDE
     Indication: Osteitis
     Dosage: 2 DF 3 TIMES A DAY
     Route: 048
     Dates: start: 20241024

REACTIONS (1)
  - Rash maculo-papular [Recovering/Resolving]

NARRATIVE: CASE EVENT DATE: 20241115
